FAERS Safety Report 4315077-1 (Version None)
Quarter: 2004Q1

REPORT INFORMATION
  Report Type: 
  Country: None (occurrence: None)
  Receive Date: 20040310
  Receipt Date: 20030312
  Transmission Date: 20041129
  Serious: Yes (Hospitalization, Other)
  Sender: FDA-Public Use
  Company Number: PHEH2003US02246

PATIENT
  Age: 80 Year
  Sex: Female

DRUGS (4)
  1. SYNTHROID [Concomitant]
  2. BETAGAN [Concomitant]
  3. MIACALCIN [Suspect]
     Indication: OSTEOPOROSIS
     Dosage: 200 IU, QD
     Dates: start: 19970101
  4. ACTONEL [Concomitant]
     Dosage: ONCE WEEKLY

REACTIONS (12)
  - ANXIETY [None]
  - BONE DENSITY DECREASED [None]
  - DEPRESSION [None]
  - DRUG INEFFECTIVE [None]
  - EPISTAXIS [None]
  - HEART RATE INCREASED [None]
  - NASAL DISCOMFORT [None]
  - NASAL DRYNESS [None]
  - NAUSEA [None]
  - PANIC ATTACK [None]
  - RHINORRHOEA [None]
  - TACHYCARDIA [None]
